FAERS Safety Report 8813554 (Version 1)
Quarter: 2012Q4

REPORT INFORMATION
  Report Type: 
  Country: US (occurrence: US)
  Receive Date: 20120927
  Receipt Date: 20120927
  Transmission Date: 20130627
  Serious: No
  Sender: FDA-Public Use
  Company Number: US-AMGEN-USASP2012049556

PATIENT
  Age: 80 Year
  Sex: Male

DRUGS (13)
  1. PROLIA [Suspect]
     Indication: OSTEOPOROSIS
     Dosage: 60 mg, q6mo
     Route: 058
     Dates: start: 20120314
  2. VITAMIN D [Concomitant]
     Dosage: UNK
  3. CALCIUM [Concomitant]
     Dosage: UNK
  4. PREDNISONE [Concomitant]
     Dosage: UNK
  5. BENICAR [Concomitant]
  6. HYTRIN [Concomitant]
  7. DIGOXIN [Concomitant]
  8. LEVOTHYROXINE [Concomitant]
  9. FUROSEMIDE [Concomitant]
  10. POTASSIUM [Concomitant]
  11. RELAFEN [Concomitant]
  12. NABUMETONE [Concomitant]
  13. MULTIVITAMIN                       /00097801/ [Concomitant]

REACTIONS (2)
  - Paraesthesia [Not Recovered/Not Resolved]
  - Dyspnoea [Not Recovered/Not Resolved]
